FAERS Safety Report 5129120-3 (Version None)
Quarter: 2006Q4

REPORT INFORMATION
  Report Type: 
  Country: None (occurrence: None)
  Receive Date: 20061011
  Receipt Date: 20060922
  Transmission Date: 20070319
  Serious: Yes (Hospitalization)
  Sender: FDA-Public Use
  Company Number: JP200609006550

PATIENT
  Age: 76 Year
  Sex: Female

DRUGS (2)
  1. EVISTA [Suspect]
     Indication: OSTEOPOROSIS
     Dosage: 60 MG, DAILY (1/D); ORAL
     Route: 048
     Dates: start: 20060804, end: 20060801
  2. ELCITONIN [Concomitant]

REACTIONS (2)
  - FATIGUE [None]
  - PLATELET COUNT DECREASED [None]
